FAERS Safety Report 9931981 (Version 1)
Quarter: 2014Q1

REPORT INFORMATION
  Report Type: Report from Study
  Country: US (occurrence: US)
  Receive Date: 20140228
  Receipt Date: 20140228
  Transmission Date: 20141002
  Serious: No
  Sender: FDA-Public Use
  Company Number: US-ABBVIE-13P-163-1132416-00

PATIENT
  Sex: Male
  Weight: 83.99 kg

DRUGS (3)
  1. ANDROGEL [Suspect]
     Indication: BLOOD TESTOSTERONE DECREASED
     Dosage: FOUR PUMPS TWICE PER DAY
     Dates: start: 2011, end: 2012
  2. ANDROGEL [Suspect]
     Dosage: FOUR PUMPS PER DAY
     Dates: start: 2012
  3. ANDROGEL [Suspect]
     Indication: BLOOD TESTOSTERONE DECREASED
     Dosage: FOUR PUMPS PER DAY
     Dates: start: 2008, end: 2011

REACTIONS (3)
  - Skin discolouration [Not Recovered/Not Resolved]
  - Joint swelling [Recovered/Resolved]
  - Local swelling [Recovered/Resolved]
